FAERS Safety Report 10988291 (Version 2)
Quarter: 2015Q2

REPORT INFORMATION
  Report Type: Spontaneous
  Country: US (occurrence: US)
  Receive Date: 20150404
  Receipt Date: 20150525
  Transmission Date: 20150821
  Serious: Yes (Death, Life-Threatening, Other)
  Sender: FDA-Public Use
  Company Number: US-JNJFOC-20130522587

PATIENT

DRUGS (1)
  1. INFLIXIMAB, RECOMBINANT [Suspect]
     Active Substance: INFLIXIMAB
     Indication: PRODUCT USED FOR UNKNOWN INDICATION
     Route: 042

REACTIONS (7)
  - Pneumonia [Unknown]
  - Pyrexia [Unknown]
  - Dyspnoea [Unknown]
  - Drug ineffective [Fatal]
  - Vomiting [Unknown]
  - Seizure [Unknown]
  - Product quality issue [Unknown]
